FAERS Safety Report 8220679-6 (Version None)
Quarter: 2012Q1

REPORT INFORMATION
  Report Type: 
  Country: None (occurrence: None)
  Receive Date: 20120320
  Receipt Date: 20120307
  Transmission Date: 20120608
  Serious: Yes (Other)
  Sender: FDA-Public Use
  Company Number: US-ELI_LILLY_AND_COMPANY-US201203002315

PATIENT
  Age: 54 Year
  Sex: Female

DRUGS (3)
  1. ZYPREXA [Suspect]
     Indication: DEPRESSION
     Dosage: 20 MG, QD
     Dates: start: 20000101
  2. ZYPREXA [Suspect]
     Dosage: 10 MG, QD
  3. SYMBYAX [Suspect]
     Indication: DEPRESSION
     Dosage: 12MG / 25MG, QD

REACTIONS (5)
  - DECREASED APPETITE [None]
  - WITHDRAWAL SYNDROME [None]
  - OFF LABEL USE [None]
  - SUICIDAL IDEATION [None]
  - INSOMNIA [None]
